FAERS Safety Report 9363578 (Version 1)
Quarter: 2013Q2

REPORT INFORMATION
  Report Type: Spontaneous
  Country: US (occurrence: US)
  Receive Date: 20130624
  Receipt Date: 20130624
  Transmission Date: 20140414
  Serious: Yes (Other)
  Sender: FDA-Public Use
  Company Number: US-JNJFOC-20130611763

PATIENT
  Age: 79 Year
  Sex: Female
  Weight: 38.56 kg

DRUGS (1)
  1. VISINE TOTALITY MULTI-SYMPTOM RELIEF [Suspect]
     Indication: EYE PRURITUS
     Dosage: 1 DROP IN EACH EYE
     Route: 047
     Dates: end: 20130615

REACTIONS (3)
  - Eye haemorrhage [Recovered/Resolved]
  - Blepharospasm [Recovered/Resolved]
  - Application site pain [Recovered/Resolved]
